FAERS Safety Report 8139708-3 (Version None)
Quarter: 2012Q1

REPORT INFORMATION
  Report Type: 
  Country: None (occurrence: None)
  Receive Date: 20120215
  Receipt Date: 20120213
  Transmission Date: 20120608
  Serious: Yes (Death, Hospitalization)
  Sender: FDA-Public Use
  Company Number: PHHO2010KR16336

PATIENT
  Sex: Male
  Weight: 39 kg

DRUGS (1)
  1. AFINITOR [Suspect]
     Indication: METASTATIC GASTRIC CANCER
     Dosage: 10 MG, QD
     Route: 048
     Dates: end: 20101022

REACTIONS (4)
  - HYPOCALCAEMIA [None]
  - DEHYDRATION [None]
  - HYPERKALAEMIA [None]
  - MALNUTRITION [None]
